FAERS Safety Report 8663356 (Version 2)
Quarter: 2013Q4

REPORT INFORMATION
  Report Type: Spontaneous
  Country: FR (occurrence: FR)
  Receive Date: 20120713
  Receipt Date: 20131031
  Transmission Date: 20140711
  Serious: Yes (Other)
  Sender: FDA-Public Use
  Company Number: FR-MSD-1207FRA000169

PATIENT
  Age: 88 Year
  Sex: Male

DRUGS (1)
  1. ORGARAN [Suspect]
     Indication: PRODUCT USED FOR UNKNOWN INDICATION
     Dosage: UNK
     Route: 058
     Dates: start: 20120522, end: 20120607

REACTIONS (2)
  - Thrombocytopenia [Recovered/Resolved]
  - Platelet aggregation [Recovered/Resolved]
